FAERS Safety Report 5507508-6 (Version None)
Quarter: 2007Q4

REPORT INFORMATION
  Report Type: 
  Country: None (occurrence: None)
  Receive Date: 20071106
  Receipt Date: 20071030
  Transmission Date: 20080405
  Serious: Yes (Hospitalization)
  Sender: FDA-Public Use
  Company Number: JP-SP-2007-03424

PATIENT
  Age: 78 Year
  Sex: Male

DRUGS (3)
  1. IMMUCYST [Suspect]
     Indication: BLADDER CANCER
     Route: 043
     Dates: start: 20060417, end: 20060605
  2. TAMSULOSIN HYDROCHLORIDE [Concomitant]
     Dates: start: 20040220
  3. CIPROFLOXACIN HYDROCHLORIDE [Concomitant]
     Dates: start: 20060417, end: 20060611

REACTIONS (1)
  - PYREXIA [None]
